FAERS Safety Report 24240996 (Version 1)
Quarter: 2024Q3

REPORT INFORMATION
  Report Type: Spontaneous
  Country: US (occurrence: US)
  Receive Date: 20240823
  Receipt Date: 20240823
  Transmission Date: 20241016
  Serious: No
  Sender: CELLTRION
  Company Number: US-CELLTRION INC.-2024US016809

PATIENT

DRUGS (2)
  1. YUFLYMA [Suspect]
     Active Substance: ADALIMUMAB-AATY
     Indication: Psoriasis
     Dosage: 1 PEN ADMINISTERED EVERY 2 WEEKS (START DATE: APPROXIMATELY 2 MONTHS AGO)
     Route: 058
  2. YUFLYMA [Suspect]
     Active Substance: ADALIMUMAB-AATY
     Dosage: MOST RECENT INJECTION: ^A COUPLE DAYS AGO^ - EXACT DATE UNKNOWN)
     Route: 058

REACTIONS (4)
  - Device malfunction [Unknown]
  - Nausea [Recovering/Resolving]
  - Drug dose omission by device [Unknown]
  - Drug ineffective [Unknown]
